FAERS Safety Report 21667881 (Version 1)
Quarter: 2022Q4

REPORT INFORMATION
  Report Type: Spontaneous
  Country: GB (occurrence: GB)
  Receive Date: 20221201
  Receipt Date: 20221201
  Transmission Date: 20230113
  Serious: Yes (Life-Threatening, Hospitalization)
  Sender: FDA-Public Use
  Company Number: GB-GE HEALTHCARE-2022CSU008492

PATIENT
  Age: 37 Year
  Sex: Female

DRUGS (2)
  1. GADOLINIUM [Suspect]
     Active Substance: GADOLINIUM
     Indication: Magnetic resonance imaging hepatobiliary
     Dosage: UNK UNK, SINGLE
     Route: 042
  2. GADOLINIUM [Suspect]
     Active Substance: GADOLINIUM
     Indication: Hepatic lesion

REACTIONS (1)
  - Acute respiratory distress syndrome [Recovered/Resolved]
